FAERS Safety Report 24359846 (Version 2)
Quarter: 2024Q3

REPORT INFORMATION
  Report Type: Spontaneous
  Country: US (occurrence: US)
  Receive Date: 20240924
  Receipt Date: 20240927
  Transmission Date: 20241017
  Serious: No
  Sender: ABBVIE
  Company Number: US-ABBVIE-5934948

PATIENT
  Sex: Female

DRUGS (2)
  1. BOTOX COSMETIC [Suspect]
     Active Substance: ONABOTULINUMTOXINA
     Indication: Skin wrinkling
     Dosage: TIME INTERVAL: AS NECESSARY: 20 UNITS
     Route: 065
     Dates: start: 20240720, end: 20240720
  2. BOTOX COSMETIC [Suspect]
     Active Substance: ONABOTULINUMTOXINA
     Indication: Skin wrinkling
     Dosage: TIME INTERVAL: AS NECESSARY: 20 UNITS
     Route: 065
     Dates: start: 20240720, end: 20240720

REACTIONS (5)
  - Skin disorder [Unknown]
  - Therapeutic product effect decreased [Unknown]
  - Alopecia [Unknown]
  - Pain in jaw [Unknown]
  - Jaw disorder [Unknown]

NARRATIVE: CASE EVENT DATE: 20240101
